FAERS Safety Report 6585432-8 (Version None)
Quarter: 2010Q1

REPORT INFORMATION
  Report Type: 
  Country: None (occurrence: None)
  Receive Date: 20100217
  Receipt Date: 20100209
  Transmission Date: 20100710
  Serious: Yes (Other)
  Sender: FDA-Public Use
  Company Number: B0632197A

PATIENT
  Sex: Female
  Weight: 2.2 kg

DRUGS (1)
  1. ZOVIRAX [Suspect]
     Indication: ENCEPHALITIS HERPES
     Dosage: 30MG PER DAY
     Route: 042
     Dates: start: 20091214, end: 20091216

REACTIONS (2)
  - DIARRHOEA HAEMORRHAGIC [None]
  - ENTEROCOLITIS [None]
